FAERS Safety Report 14304470 (Version 1)
Quarter: 2017Q4

REPORT INFORMATION
  Report Type: Spontaneous
  Country: JP (occurrence: JP)
  Receive Date: 20171219
  Receipt Date: 20171219
  Transmission Date: 20180321
  Serious: Yes (Hospitalization, Other)
  Sender: FDA-Public Use
  Company Number: JP-OTSUKA-03100-JPN-06-0621

PATIENT
  Age: 44 Year
  Sex: Female
  Weight: 55 kg

DRUGS (20)
  1. ABILIFY [Suspect]
     Active Substance: ARIPIPRAZOLE
     Route: 048
     Dates: start: 20060627
  2. CARBAMAZEPINE. [Suspect]
     Active Substance: CARBAMAZEPINE
     Dosage: 400 MG, TID
     Route: 048
     Dates: start: 20061020, end: 20061022
  3. CARBAMAZEPINE. [Suspect]
     Active Substance: CARBAMAZEPINE
     Route: 048
     Dates: start: 20060922, end: 20060928
  4. VALPROATE SODIUM. [Suspect]
     Active Substance: VALPROATE SODIUM
     Indication: AFFECTIVE DISORDER
     Dosage: 400 MG, QD
     Route: 048
     Dates: start: 20040401, end: 20061022
  5. SEROQUEL [Concomitant]
     Active Substance: QUETIAPINE FUMARATE
     Route: 048
     Dates: end: 20060803
  6. ABILIFY [Suspect]
     Active Substance: ARIPIPRAZOLE
     Route: 048
     Dates: end: 20060803
  7. ABILIFY [Suspect]
     Active Substance: ARIPIPRAZOLE
     Dosage: 30 MG, QD
     Route: 048
     Dates: start: 20060804, end: 20061021
  8. CEBOTVAL [Suspect]
     Active Substance: VALPROATE SODIUM
     Dosage: 200 MG, BID
     Route: 048
     Dates: start: 20040401, end: 20061022
  9. CARBAMAZEPINE. [Suspect]
     Active Substance: CARBAMAZEPINE
     Route: 048
     Dates: start: 20060929, end: 20061005
  10. CARBAMAZEPINE. [Suspect]
     Active Substance: CARBAMAZEPINE
     Indication: AFFECTIVE DISORDER
     Dosage: 800MG 22-SEP-2006 TO UNKNOWN; 1200 MG UNKNOWN TO 22-OCT-2006/400MG 1WK/600MG 1WK/800MG 2WK/1200MG 3D
     Route: 048
     Dates: start: 20060922, end: 20061022
  11. RONFLEMAN [Concomitant]
     Dosage: 0.25 MG, SINGLE
     Route: 048
     Dates: start: 20031008
  12. ZOPICLONE [Concomitant]
     Active Substance: ZOPICLONE
     Indication: INSOMNIA
     Dosage: 10 MG, QD
     Route: 048
     Dates: start: 20031008
  13. CONTOMIN [Concomitant]
     Active Substance: CHLORPROMAZINE
     Dosage: 50 MG, SINGLE
     Route: 048
     Dates: start: 20031008
  14. LEMONAMIN [Concomitant]
     Route: 048
     Dates: end: 20060803
  15. CHLORPROMAZINE HIBENZATE [Concomitant]
     Active Substance: CHLORPROMAZINE HIBENZATE
     Indication: SCHIZOPHRENIA
     Dosage: 50 MG, QD
     Route: 048
     Dates: start: 20031008
  16. CARBAMAZEPINE. [Suspect]
     Active Substance: CARBAMAZEPINE
     Route: 048
     Dates: start: 20061006, end: 20061019
  17. SLOWHEIM [Concomitant]
     Active Substance: ZOPICLONE
     Dosage: 10 MG, SINGLE
     Route: 048
     Dates: start: 20031008
  18. HALOPERIDOL. [Concomitant]
     Active Substance: HALOPERIDOL
     Dosage: 13 MG, QD
     Route: 048
     Dates: start: 20060803
  19. ABILIFY [Suspect]
     Active Substance: ARIPIPRAZOLE
     Dosage: 12 MG, BID
     Route: 048
     Dates: start: 20061022
  20. SEROQUEL [Concomitant]
     Active Substance: QUETIAPINE FUMARATE
     Dosage: 150 MG, TID
     Route: 048

REACTIONS (2)
  - Hepatitis fulminant [Recovered/Resolved]
  - Drug eruption [None]

NARRATIVE: CASE EVENT DATE: 20061019
